FAERS Safety Report 7775721-3 (Version None)
Quarter: 2011Q3

REPORT INFORMATION
  Report Type: 
  Country: None (occurrence: None)
  Receive Date: 20110923
  Receipt Date: 20110913
  Transmission Date: 20111222
  Serious: Yes (Death)
  Sender: FDA-Public Use
  Company Number: RU-GLAXOSMITHKLINE-B0747670A

PATIENT
  Sex: Female
  Weight: 89 kg

DRUGS (6)
  1. DEXAMETHASONE [Concomitant]
     Indication: PROPHYLAXIS
     Dates: start: 20110606, end: 20110829
  2. LAPATINIB [Suspect]
     Indication: BREAST CANCER METASTATIC
     Dosage: 1250MG PER DAY
     Route: 048
     Dates: start: 20110607, end: 20110827
  3. IMODIUM [Concomitant]
     Indication: DIARRHOEA
     Dates: start: 20110702, end: 20110705
  4. CERUCAL [Concomitant]
     Indication: VOMITING
     Dates: start: 20110610, end: 20110612
  5. DROTAVERINE [Concomitant]
     Indication: MUCOSAL INFLAMMATION
     Dates: start: 20110702, end: 20110705
  6. DOCETAXEL [Suspect]
     Indication: BREAST CANCER METASTATIC
     Dosage: 145MG EVERY 3 WEEKS
     Route: 042
     Dates: start: 20110607, end: 20110828

REACTIONS (4)
  - STOMATITIS [None]
  - SUDDEN DEATH [None]
  - PNEUMONITIS [None]
  - PYREXIA [None]
